FAERS Safety Report 22078948 (Version 2)
Quarter: 2023Q2

REPORT INFORMATION
  Report Type: Spontaneous
  Country: BR (occurrence: BR)
  Receive Date: 20230309
  Receipt Date: 20230515
  Transmission Date: 20230721
  Serious: Yes (Other)
  Sender: FDA-Public Use
  Company Number: BR-GLAXOSMITHKLINE-BR2022AMR097482

PATIENT

DRUGS (7)
  1. BENLYSTA [Suspect]
     Active Substance: BELIMUMAB
     Indication: Systemic lupus erythematosus
     Dosage: UNK UNK, Z,7 AMPOLES OF 120MG EVERY 30 DAYS(IN APRIL OR MAY OF LAST YEAR)
     Route: 042
     Dates: start: 20220607
  2. BENLYSTA [Suspect]
     Active Substance: BELIMUMAB
     Dosage: 120 MG, Z (6 AMPOLES OF 120MG EVERY 30 DAYS)
     Route: 042
  3. AMOXICILLIN [Suspect]
     Active Substance: AMOXICILLIN
     Indication: Coronavirus infection
     Dosage: UNK,FOR ABOUT 10 DAYS
  4. AMOXICILLIN\CLAVULANATE POTASSIUM [Suspect]
     Active Substance: AMOXICILLIN\CLAVULANATE POTASSIUM
     Indication: Coronavirus infection
     Dosage: UNK, (ABOUT 10 DAYS)
  5. HYDROCORTISONE [Suspect]
     Active Substance: HYDROCORTISONE
     Indication: Product used for unknown indication
     Dosage: UNK
  6. DIPYRONE [Concomitant]
     Active Substance: DIPYRONE
     Indication: Coronavirus infection
     Dosage: 1 G, QD, 01 TABLET
  7. DIPYRONE [Concomitant]
     Active Substance: DIPYRONE
     Dosage: UNK, FOR ABOUT 10 DAYS

REACTIONS (52)
  - Systemic lupus erythematosus [Unknown]
  - Nervousness [Recovered/Resolved]
  - Erythema [Not Recovered/Not Resolved]
  - Skin burning sensation [Recovered/Resolved]
  - Blister [Recovered/Resolved]
  - Butterfly rash [Recovered/Resolved]
  - Peripheral coldness [Recovered/Resolved]
  - Dizziness [Not Recovered/Not Resolved]
  - Fall [Recovered/Resolved]
  - Anxiety [Recovered/Resolved]
  - Heart rate increased [Recovered/Resolved]
  - Mental disorder [Recovered/Resolved]
  - Screaming [Recovered/Resolved]
  - Crying [Recovered/Resolved]
  - Gastritis [Recovered/Resolved]
  - Abdominal discomfort [Recovered/Resolved]
  - Dysgeusia [Not Recovered/Not Resolved]
  - Coronavirus infection [Recovered/Resolved]
  - Productive cough [Recovered/Resolved]
  - Throat irritation [Recovered/Resolved]
  - Chest pain [Not Recovered/Not Resolved]
  - Pain [Recovered/Resolved]
  - Chills [Recovered/Resolved]
  - Pyrexia [Recovered/Resolved]
  - Rhinorrhoea [Not Recovered/Not Resolved]
  - Cough [Not Recovered/Not Resolved]
  - Condition aggravated [Not Recovered/Not Resolved]
  - Stress [Unknown]
  - Urine abnormality [Not Recovered/Not Resolved]
  - Abnormal faeces [Not Recovered/Not Resolved]
  - Allergic cough [Not Recovered/Not Resolved]
  - Fatigue [Not Recovered/Not Resolved]
  - Therapy interrupted [Unknown]
  - Confusional state [Unknown]
  - Facial operation [Unknown]
  - Skin laceration [Unknown]
  - Inflammation [Unknown]
  - Temporomandibular joint surgery [Unknown]
  - Bruxism [Recovered/Resolved]
  - Fat tissue increased [Recovered/Resolved]
  - Jaw disorder [Unknown]
  - Malaise [Unknown]
  - Headache [Not Recovered/Not Resolved]
  - Photosensitivity reaction [Not Recovered/Not Resolved]
  - Arthralgia [Not Recovered/Not Resolved]
  - Immune system disorder [Not Recovered/Not Resolved]
  - Ill-defined disorder [Not Recovered/Not Resolved]
  - Product use in unapproved indication [Unknown]
  - Circumstance or information capable of leading to medication error [Unknown]
  - Inappropriate schedule of product administration [Unknown]
  - Product dose omission issue [Unknown]
  - Product supply issue [Unknown]

NARRATIVE: CASE EVENT DATE: 20220101
